FAERS Safety Report 24834944 (Version 1)
Quarter: 2025Q1

REPORT INFORMATION
  Report Type: Spontaneous
  Country: FR (occurrence: FR)
  Receive Date: 20250113
  Receipt Date: 20250113
  Transmission Date: 20250409
  Serious: Yes (Hospitalization, Other)
  Sender: AUROBINDO
  Company Number: FR-AFSSAPS-TO2024002358

PATIENT
  Age: 86 Year
  Sex: Male
  Weight: 71.5 kg

DRUGS (1)
  1. APIXABAN [Suspect]
     Active Substance: APIXABAN
     Indication: Atrial fibrillation
     Dosage: 5 MILLIGRAM, ONCE A DAY (2X2.5 MG)
     Route: 048
     Dates: start: 20210615

REACTIONS (1)
  - Cerebral haematoma [Recovered/Resolved with Sequelae]

NARRATIVE: CASE EVENT DATE: 20241206
